FAERS Safety Report 4395696-7 (Version None)
Quarter: 2004Q3

REPORT INFORMATION
  Report Type: 
  Country: None (occurrence: None)
  Receive Date: 20040707
  Receipt Date: 20040629
  Transmission Date: 20050211
  Serious: Yes (Life-Threatening)
  Sender: FDA-Public Use
  Company Number: 2004AP02795

PATIENT
  Age: 79 Year
  Sex: Male
  Weight: 54 kg

DRUGS (11)
  1. IRESSA [Suspect]
     Indication: LUNG NEOPLASM MALIGNANT
     Dosage: 250 MG DAILY PO
     Route: 048
     Dates: start: 20040215, end: 20040319
  2. IRESSA [Suspect]
     Indication: SQUAMOUS CELL CARCINOMA
     Dosage: 250 MG DAILY PO
     Route: 048
     Dates: start: 20040215, end: 20040319
  3. KETEK [Suspect]
     Indication: PNEUMONIA
     Dosage: 600 MG DAILY PO
     Route: 048
     Dates: start: 20040315, end: 20040320
  4. CEFZON [Suspect]
     Indication: PNEUMONIA
     Dosage: 300 MG DAILY PO
     Route: 048
     Dates: start: 20040319, end: 20040324
  5. TIENAM [Suspect]
     Indication: PNEUMONIA
     Dosage: 1 G DAILY
     Dates: start: 20040325, end: 20040326
  6. MINOMYCIN [Suspect]
     Indication: PNEUMONIA
     Dosage: 200 MG DAILY
     Dates: start: 20040325, end: 20040326
  7. MUCODYNE [Concomitant]
  8. MUCOSOLVAN [Concomitant]
  9. AMARYL [Concomitant]
  10. CLARITHROMYCIN [Concomitant]
  11. TAMIFLU [Concomitant]

REACTIONS (5)
  - DIABETES MELLITUS [None]
  - DRUG INEFFECTIVE [None]
  - EMPHYSEMA [None]
  - LOBAR PNEUMONIA [None]
  - PNEUMONIA BACTERIAL [None]
